FAERS Safety Report 20671699 (Version 1)
Quarter: 2022Q2

REPORT INFORMATION
  Report Type: Spontaneous
  Country: US (occurrence: US)
  Receive Date: 20220405
  Receipt Date: 20220405
  Transmission Date: 20220720
  Serious: Yes (Other)
  Sender: FDA-Public Use
  Company Number: US-AMGEN-USASP2022057545

PATIENT
  Sex: Female

DRUGS (2)
  1. CORLANOR [Suspect]
     Active Substance: IVABRADINE HYDROCHLORIDE
     Indication: Atrial tachycardia
     Dosage: 5 MILLIGRAM, BID
     Route: 065
  2. NUTRAFOL [Concomitant]
     Dosage: UNK
     Route: 065

REACTIONS (4)
  - Cataract operation [Unknown]
  - Alopecia [Unknown]
  - Off label use [Unknown]
  - Visual impairment [Unknown]
